FAERS Safety Report 9248258 (Version 1)
Quarter: 2013Q2

REPORT INFORMATION
  Report Type: Spontaneous
  Country: US (occurrence: None)
  Receive Date: 20130419
  Receipt Date: 20130419
  Transmission Date: 20140414
  Serious: Yes (Disabling, Other)
  Sender: FDA-Public Use
  Company Number: None

PATIENT
  Age: 39 Year
  Sex: Female
  Weight: 61.24 kg

DRUGS (1)
  1. LISTERINE [Suspect]
     Indication: DENTAL DISORDER PROPHYLAXIS
     Dosage: 5ML OR LESS ONCE A DAY DENTAL
     Route: 004
     Dates: start: 20130116, end: 20130311

REACTIONS (9)
  - Pain [None]
  - Burning sensation [None]
  - Glossodynia [None]
  - Tooth disorder [None]
  - Dry mouth [None]
  - Chapped lips [None]
  - Tongue disorder [None]
  - Oral disorder [None]
  - Chemical injury [None]
